FAERS Safety Report 16048713 (Version 2)
Quarter: 2019Q2

REPORT INFORMATION
  Report Type: Report from Study
  Country: IT (occurrence: IT)
  Receive Date: 20190307
  Receipt Date: 20190515
  Transmission Date: 20190711
  Serious: Yes (Other)
  Sender: FDA-Public Use
  Company Number: IT-TEVA-2019-IT-1019948

PATIENT
  Age: 88 Year
  Sex: Female

DRUGS (9)
  1. TELMISARTAN. [Concomitant]
     Active Substance: TELMISARTAN
  2. ZYLORIC 100 MG COMPRESSE [Concomitant]
  3. BISOPROLOLO TEVA 5 MG COMPRESSE [Concomitant]
  4. AMIODARONE HYDROCHLORIDE. [Concomitant]
     Active Substance: AMIODARONE HYDROCHLORIDE
  5. RANITIDINA ABC 150 MG COMPRESSE RIVESTITE CON FILM [Concomitant]
  6. CRESTOR 10 MG COMPRESSE RIVESTITE CON FILM [Concomitant]
  7. CARDIRENE 160 MG POLVERE PER SOLUZIONE ORALE [Concomitant]
     Active Substance: ASPIRIN DL-LYSINE
  8. LEVOFLOXACIN HEMIHYDRATE [Suspect]
     Active Substance: LEVOFLOXACIN
     Indication: BRONCHITIS
     Dosage: 500 MILLIGRAM DAILY;
     Route: 048
     Dates: start: 20190211, end: 20190213
  9. CITALOPRAM ABC 40 MG/ML GOCCE ORALI, SOLUZIONE [Concomitant]

REACTIONS (1)
  - Epilepsy [Recovered/Resolved]

NARRATIVE: CASE EVENT DATE: 20190213
